FAERS Safety Report 4294601-1 (Version None)
Quarter: 2004Q1

REPORT INFORMATION
  Report Type: 
  Country: None (occurrence: None)
  Receive Date: 20040213
  Receipt Date: 20030514
  Transmission Date: 20041129
  Serious: Yes (Death, Hospitalization)
  Sender: FDA-Public Use
  Company Number: WAES 0305GBR00091

PATIENT
  Age: 59 Year
  Sex: Male
  Weight: 62 kg

DRUGS (7)
  1. ATROPINE SULFATE AND DIPHENOXYLATE HYDROCHLORIDE [Concomitant]
     Route: 048
  2. CALCIUM CARBONATE AND CHOLECALCIFEROL [Concomitant]
     Indication: OSTEOPOROSIS
     Route: 048
  3. FOLIC ACID [Concomitant]
     Indication: COELIAC DISEASE
  4. INDOCIN [Suspect]
     Indication: PERICARDITIS
     Route: 048
     Dates: start: 20020717, end: 20020815
  5. LANSOPRAZOLE [Concomitant]
     Route: 048
  6. PANCREATIN [Concomitant]
     Route: 048
  7. PREDNISOLONE [Concomitant]
     Indication: PANCREATIC INJURY
     Route: 048

REACTIONS (3)
  - APLASTIC ANAEMIA [None]
  - BONE MARROW DEPRESSION [None]
  - NEUTROPENIC SEPSIS [None]
